FAERS Safety Report 20325872 (Version 2)
Quarter: 2022Q1

REPORT INFORMATION
  Report Type: Report from Study
  Country: CA (occurrence: CA)
  Receive Date: 20220112
  Receipt Date: 20220113
  Transmission Date: 20220423
  Serious: Yes (Other)
  Sender: FDA-Public Use
  Company Number: CA-ABBVIE-22K-028-4227898-00

PATIENT
  Sex: Female

DRUGS (1)
  1. HUMIRA [Suspect]
     Active Substance: ADALIMUMAB
     Indication: Ankylosing spondylitis
     Route: 058
     Dates: start: 20150417

REACTIONS (14)
  - Pelvic fracture [Unknown]
  - Post procedural complication [Unknown]
  - Device breakage [Unknown]
  - Device breakage [Unknown]
  - Compression fracture [Not Recovered/Not Resolved]
  - Insomnia [Unknown]
  - Somnolence [Unknown]
  - Medical device site pain [Unknown]
  - Neck pain [Unknown]
  - Pain [Not Recovered/Not Resolved]
  - Hypertonic bladder [Unknown]
  - Fall [Unknown]
  - Spinal disorder [Unknown]
  - Device material issue [Unknown]

NARRATIVE: CASE EVENT DATE: 20160101
